FAERS Safety Report 9548217 (Version 1)
Quarter: 2013Q3

REPORT INFORMATION
  Report Type: Spontaneous
  Country: US (occurrence: None)
  Receive Date: 20130923
  Receipt Date: 20130923
  Transmission Date: 20140515
  Serious: Yes (Disabling)
  Sender: FDA-Public Use
  Company Number: None

PATIENT
  Age: 26 Year
  Sex: Female
  Weight: 68.04 kg

DRUGS (1)
  1. LUPRON DEPOT IM [Suspect]
     Indication: ENDOMETRIOSIS
     Dosage: 1 SHOT LASTED 3 MONTHS SHOT
     Dates: start: 201305

REACTIONS (10)
  - Alopecia [None]
  - Ovarian cyst [None]
  - Emotional disorder [None]
  - Endometriosis [None]
  - Fatigue [None]
  - Asthenia [None]
  - Impaired work ability [None]
  - Anger [None]
  - Feeling abnormal [None]
  - Condition aggravated [None]
